FAERS Safety Report 8327060-X (Version None)
Quarter: 2012Q2

REPORT INFORMATION
  Report Type: 
  Country: None (occurrence: None)
  Receive Date: 20120501
  Receipt Date: 20111221
  Transmission Date: 20120825
  Serious: No
  Sender: FDA-Public Use
  Company Number: US-SANOFI-AVENTIS-2011SA084271

PATIENT
  Sex: Female

DRUGS (2)
  1. APIDRA [Suspect]
     Dosage: SLIDING SCALE FREQUENCY
     Route: 058
     Dates: start: 20100101
  2. SOLOSTAR [Suspect]
     Dates: start: 20100101

REACTIONS (7)
  - SWELLING FACE [None]
  - BLOOD GLUCOSE INCREASED [None]
  - OEDEMA PERIPHERAL [None]
  - INJECTION SITE HAEMORRHAGE [None]
  - MEMORY IMPAIRMENT [None]
  - DRUG DOSE OMISSION [None]
  - THERAPEUTIC RESPONSE DECREASED [None]
